FAERS Safety Report 5302148-6 (Version None)
Quarter: 2007Q2

REPORT INFORMATION
  Report Type: 
  Country: None (occurrence: None)
  Receive Date: 20070416
  Receipt Date: 20070416
  Transmission Date: 20071010
  Serious: Yes (Other)
  Sender: FDA-Public Use
  Company Number: None

PATIENT
  Age: 4 Year
  Sex: Female
  Weight: 23.1334 kg

DRUGS (1)
  1. AGENT COOL BLUE RINSE LISTERINE MCNEILL-PCC [Suspect]
     Indication: DENTAL PLAQUE
     Dosage: 1 OZ WHEN BRUSHING PO
     Route: 048
     Dates: start: 20070321, end: 20070324

REACTIONS (10)
  - BODY TEMPERATURE INCREASED [None]
  - HAND-FOOT-AND-MOUTH DISEASE [None]
  - ORAL INTAKE REDUCED [None]
  - ORAL MUCOSAL BLISTERING [None]
  - PHARMACEUTICAL PRODUCT COMPLAINT [None]
  - PHARYNGEAL ERYTHEMA [None]
  - PHARYNGOLARYNGEAL PAIN [None]
  - ULCER HAEMORRHAGE [None]
  - VARICELLA [None]
  - WEIGHT DECREASED [None]
